FAERS Safety Report 6634347-5 (Version None)
Quarter: 2010Q1

REPORT INFORMATION
  Report Type: 
  Country: None (occurrence: None)
  Receive Date: 20100225
  Receipt Date: 20090707
  Transmission Date: 20100710
  Serious: Yes (Other)
  Sender: FDA-Public Use
  Company Number: DSA_34000_2009

PATIENT
  Sex: Female

DRUGS (2)
  1. VASOTEC [Suspect]
     Indication: CARDIAC FAILURE CONGESTIVE
     Dosage: (DF ORAL) SEE IMAGE
     Route: 048
     Dates: end: 20040224
  2. VASOTEC [Suspect]
     Indication: CARDIAC FAILURE CONGESTIVE
     Dosage: (DF ORAL) SEE IMAGE
     Route: 048
     Dates: start: 20040227, end: 20040301

REACTIONS (1)
  - RENAL FAILURE ACUTE [None]
